FAERS Safety Report 15058152 (Version 1)
Quarter: 2018Q2

REPORT INFORMATION
  Report Type: Spontaneous
  Country: IT (occurrence: IT)
  Receive Date: 20180625
  Receipt Date: 20180625
  Transmission Date: 20180711
  Serious: Yes (Hospitalization, Other)
  Sender: FDA-Public Use
  Company Number: IT-AUROBINDO-AUR-APL-2018-032204

PATIENT
  Age: 28 Year
  Sex: Female

DRUGS (2)
  1. DULOXETINE. [Suspect]
     Active Substance: DULOXETINE
     Indication: DEPRESSION
     Dosage: 27 DOSAGE FORM IN TOTAL
     Route: 048
     Dates: start: 20180404, end: 20180405
  2. FLURAZEPAM MONOHYDROCHLORIDE [Suspect]
     Active Substance: FLURAZEPAM MONOHYDROCHLORIDE
     Indication: INSOMNIA
     Dosage: 29 DOSAGE FORM IN TOTAL
     Route: 048
     Dates: start: 20180404, end: 20180405

REACTIONS (2)
  - Drug abuse [Recovering/Resolving]
  - Sopor [Recovering/Resolving]

NARRATIVE: CASE EVENT DATE: 20180404
